FAERS Safety Report 11176704 (Version 1)
Quarter: 2015Q2

REPORT INFORMATION
  Report Type: Spontaneous
  Country: US (occurrence: None)
  Receive Date: 20150609
  Receipt Date: 20150609
  Transmission Date: 20150821
  Serious: Yes (Life-Threatening, Hospitalization)
  Sender: FDA-Public Use
  Company Number: None

PATIENT
  Age: 71 Year
  Sex: Male
  Weight: 87 kg

DRUGS (23)
  1. LISINOPRIL. [Concomitant]
     Active Substance: LISINOPRIL
  2. MONTELUKAST [Concomitant]
     Active Substance: MONTELUKAST SODIUM
  3. THIAMINE [Concomitant]
     Active Substance: THIAMINE
  4. GABAPENTIN. [Concomitant]
     Active Substance: GABAPENTIN
  5. MEGESTEROL [Concomitant]
  6. PARICALCITOL. [Concomitant]
     Active Substance: PARICALCITOL
  7. CALCIUM ACETATE. [Concomitant]
     Active Substance: CALCIUM ACETATE
  8. CINCACELCET [Concomitant]
  9. DOCUSATE [Concomitant]
     Active Substance: DOCUSATE
  10. FOLIC ACID. [Concomitant]
     Active Substance: FOLIC ACID
  11. SENNOSIDES. [Concomitant]
     Active Substance: SENNOSIDES
  12. SODIUM CHLORIDE. [Concomitant]
     Active Substance: SODIUM CHLORIDE
  13. DUONEB [Concomitant]
     Active Substance: ALBUTEROL SULFATE\IPRATROPIUM BROMIDE
  14. POLYETHYLENE GLYCOL [Concomitant]
     Active Substance: POLYETHYLENE GLYCOLS
  15. MIRTAZAPINE. [Concomitant]
     Active Substance: MIRTAZAPINE
  16. TAMSULOSIN [Concomitant]
     Active Substance: TAMSULOSIN
  17. HUMALOG [Concomitant]
     Active Substance: INSULIN LISPRO
  18. EPOETIN ALFA [Concomitant]
     Active Substance: ERYTHROPOIETIN
  19. OMEPRAZOLE. [Concomitant]
     Active Substance: OMEPRAZOLE
  20. TIDAC [Concomitant]
  21. LISINOPRIL 10 MG [Suspect]
     Active Substance: LISINOPRIL
     Indication: HYPERTENSION
     Route: 048
     Dates: start: 20140429, end: 20150604
  22. ATORVASTATIN [Concomitant]
     Active Substance: ATORVASTATIN
  23. LEVEMIR [Concomitant]
     Active Substance: INSULIN DETEMIR

REACTIONS (1)
  - Angioedema [None]

NARRATIVE: CASE EVENT DATE: 20150605
